FAERS Safety Report 11615605 (Version 1)
Quarter: 2015Q4

REPORT INFORMATION
  Report Type: Spontaneous
  Country: GB (occurrence: GB)
  Receive Date: 20151009
  Receipt Date: 20151009
  Transmission Date: 20160304
  Serious: Yes (Other)
  Sender: FDA-Public Use
  Company Number: GB-ACTAVISPR-2015-17721

PATIENT
  Age: 52 Year
  Sex: Female

DRUGS (3)
  1. PHYSIOLOGICAL SALINE SOLUTION [Concomitant]
     Active Substance: SODIUM CHLORIDE
     Indication: CATHETER MANAGEMENT
     Dosage: UNK
     Route: 042
  2. METOCLOPRAMIDE. [Concomitant]
     Active Substance: METOCLOPRAMIDE
     Indication: PREMEDICATION
     Dosage: UNK
     Route: 048
  3. DOCETAXEL ACTAVIS [Suspect]
     Active Substance: DOCETAXEL
     Indication: BREAST CANCER
     Dosage: 190 MG, 3/WEEK
     Route: 042
     Dates: start: 20150521, end: 20150706

REACTIONS (6)
  - Infusion site pain [Recovered/Resolved]
  - Infusion site discolouration [Recovered/Resolved]
  - Infusion site inflammation [Recovered/Resolved]
  - Infusion site scar [Recovered/Resolved]
  - Infusion site phlebitis [Recovered/Resolved]
  - Infusion site exfoliation [Recovered/Resolved]

NARRATIVE: CASE EVENT DATE: 20150521
